FAERS Safety Report 15893894 (Version 1)
Quarter: 2019Q1

REPORT INFORMATION
  Report Type: Spontaneous
  Country: US (occurrence: US)
  Receive Date: 20190131
  Receipt Date: 20190131
  Transmission Date: 20190417
  Serious: No
  Sender: FDA-Public Use
  Company Number: US-STRIDES ARCOLAB LIMITED-2018SP009949

PATIENT
  Age: 23 Year
  Sex: Female

DRUGS (4)
  1. RITONAVIR. [Suspect]
     Active Substance: RITONAVIR
     Indication: PRODUCT USED FOR UNKNOWN INDICATION
     Dosage: 100 (UNITS UNSPECIFIED) TOTAL DAILY DOSE
     Route: 048
  2. ABACAVIR. [Suspect]
     Active Substance: ABACAVIR
     Indication: PRODUCT USED FOR UNKNOWN INDICATION
     Dosage: 30 (UNITS UNSPECIFIED) TOTAL DAILY DOSE
     Route: 048
  3. LAMIVUDINE AND ZIDOVUDINE TABLETS [Suspect]
     Active Substance: LAMIVUDINE\ZIDOVUDINE
     Indication: PRODUCT USED FOR UNKNOWN INDICATION
     Dosage: 30 (UNITS UNSPECIFIED) TOTAL DAILY DOSE
     Route: 048
  4. DOLUTEGRAVIR [Suspect]
     Active Substance: DOLUTEGRAVIR
     Indication: PRODUCT USED FOR UNKNOWN INDICATION
     Dosage: 50 (UNITS UNSPECIFIED) TOTAL DAILY DOSE
     Route: 048

REACTIONS (1)
  - Exposure during pregnancy [Unknown]
